FAERS Safety Report 14104186 (Version 1)
Quarter: 2017Q4

REPORT INFORMATION
  Report Type: Spontaneous
  Country: US (occurrence: US)
  Receive Date: 20171018
  Receipt Date: 20171018
  Transmission Date: 20180321
  Serious: No
  Sender: FDA-Public Use
  Company Number: US-AMGEN-USASP2017109528

PATIENT
  Age: 71 Year
  Sex: Female

DRUGS (10)
  1. CALCIUM [Concomitant]
     Active Substance: CALCIUM
  2. PROLIA [Suspect]
     Active Substance: DENOSUMAB
     Indication: OSTEOPOROSIS POSTMENOPAUSAL
     Dosage: UNK, UNK
     Route: 065
     Dates: start: 20170511
  3. DULOXETINE. [Concomitant]
     Active Substance: DULOXETINE
  4. NORVASC [Concomitant]
     Active Substance: AMLODIPINE BESYLATE
  5. GABAPENTIN. [Concomitant]
     Active Substance: GABAPENTIN
  6. CARVEDILOL. [Concomitant]
     Active Substance: CARVEDILOL
  7. LORAZEPAM. [Concomitant]
     Active Substance: LORAZEPAM
  8. CLONIDINE. [Concomitant]
     Active Substance: CLONIDINE
  9. HYDROCODONE [Concomitant]
     Active Substance: HYDROCODONE
     Dosage: 10/325  UNK, TID
  10. VITAMIN D [Concomitant]
     Active Substance: CHOLECALCIFEROL

REACTIONS (13)
  - Insomnia [Unknown]
  - Loss of personal independence in daily activities [Unknown]
  - Musculoskeletal pain [Unknown]
  - Arthralgia [Unknown]
  - Dysphonia [Unknown]
  - Throat tightness [Unknown]
  - Pain in jaw [Recovering/Resolving]
  - Oral pain [Recovering/Resolving]
  - Exostosis [Unknown]
  - Pain in extremity [Unknown]
  - Mouth cyst [Recovering/Resolving]
  - Decreased appetite [Unknown]
  - Back pain [Unknown]

NARRATIVE: CASE EVENT DATE: 201707
